FAERS Safety Report 12205431 (Version 1)
Quarter: 2016Q1

REPORT INFORMATION
  Report Type: Spontaneous
  Country: US (occurrence: US)
  Receive Date: 20160323
  Receipt Date: 20160323
  Transmission Date: 20160526
  Serious: No
  Sender: FDA-Public Use
  Company Number: US-GALDERMA-US15006947

PATIENT
  Age: 19 Year
  Sex: Female

DRUGS (3)
  1. CLOBEX [Suspect]
     Active Substance: CLOBETASOL PROPIONATE
     Indication: PSORIASIS
     Route: 061
     Dates: start: 2009
  2. CLOBEX [Suspect]
     Active Substance: CLOBETASOL PROPIONATE
     Indication: PSORIASIS
     Route: 061
     Dates: start: 2009
  3. DERMA SMOOTHE (FLUOCINOLONE) TOPICAL OILDERMA SOOTHEDERMA SOOTHE [Concomitant]
     Indication: PSORIASIS
     Route: 061

REACTIONS (2)
  - Drug effect decreased [Not Recovered/Not Resolved]
  - Off label use [Not Recovered/Not Resolved]
